FAERS Safety Report 6552369-X (Version None)
Quarter: 2010Q1

REPORT INFORMATION
  Report Type: 
  Country: None (occurrence: None)
  Receive Date: 20100126
  Receipt Date: 20100114
  Transmission Date: 20100710
  Serious: Yes (Hospitalization)
  Sender: FDA-Public Use
  Company Number: US-WYE-H12985710

PATIENT
  Age: 53 Year
  Sex: Female

DRUGS (4)
  1. EFFEXOR [Suspect]
     Dosage: OVERDOSE AMOUNT 10 (150 MG) TABLETS
     Route: 048
  2. NORPRAMIN [Suspect]
     Dosage: OVERDOSE AMOUNT 10 (100 MG) TABLETS
     Route: 048
  3. AMITRIPTYLINE HCL [Concomitant]
     Dosage: UNKNOWN
  4. HYDROCODONE [Suspect]
     Dosage: OVERDOSE AMOUNT 20 (7.5 MG/325 MG) TABLETS
     Route: 048

REACTIONS (10)
  - BLOOD PRESSURE DECREASED [None]
  - BODY TEMPERATURE DECREASED [None]
  - COMA SCALE ABNORMAL [None]
  - ELECTROCARDIOGRAM P WAVE ABNORMAL [None]
  - ELECTROCARDIOGRAM QRS COMPLEX PROLONGED [None]
  - ELECTROCARDIOGRAM T WAVE PEAKED [None]
  - HYPOVENTILATION [None]
  - INTENTIONAL OVERDOSE [None]
  - SINUS TACHYCARDIA [None]
  - UNRESPONSIVE TO STIMULI [None]
